FAERS Safety Report 8671646 (Version 2)
Quarter: 2013Q4

REPORT INFORMATION
  Report Type: Spontaneous
  Country: US (occurrence: US)
  Receive Date: 20120718
  Receipt Date: 20131101
  Transmission Date: 20140711
  Serious: No
  Sender: FDA-Public Use
  Company Number: US-009507513-1207USA002670

PATIENT
  Sex: Male

DRUGS (1)
  1. DR. SCHOLL^S NO ACTIVE INGREDIENT [Suspect]
     Indication: PRODUCT USED FOR UNKNOWN INDICATION

REACTIONS (2)
  - Pain in extremity [Unknown]
  - Therapeutic product ineffective [Unknown]
